FAERS Safety Report 13447979 (Version 5)
Quarter: 2018Q1

REPORT INFORMATION
  Report Type: Spontaneous
  Country: JP (occurrence: JP)
  Receive Date: 20170417
  Receipt Date: 20180208
  Transmission Date: 20180508
  Serious: Yes (Death, Other)
  Sender: FDA-Public Use
  Company Number: JP-009507513-1704JPN001314J

PATIENT
  Age: 73 Year
  Sex: Female
  Weight: 36 kg

DRUGS (2)
  1. KEYTRUDA [Suspect]
     Active Substance: PEMBROLIZUMAB
     Indication: SQUAMOUS CELL CARCINOMA OF LUNG
     Dosage: 200 MG, Q3W
     Route: 041
     Dates: start: 20170331, end: 20170331
  2. PREDNISOLONE. [Concomitant]
     Active Substance: PREDNISOLONE
     Dosage: 7.0 MG, QD
     Route: 048

REACTIONS (2)
  - Aortic rupture [Unknown]
  - Haemoptysis [Fatal]

NARRATIVE: CASE EVENT DATE: 20170404
